FAERS Safety Report 23406855 (Version 2)
Quarter: 2024Q1

REPORT INFORMATION
  Report Type: Spontaneous
  Country: MY (occurrence: MY)
  Receive Date: 20240116
  Receipt Date: 20240117
  Transmission Date: 20240410
  Serious: No
  Sender: FDA-Public Use
  Company Number: MY-MLMSERVICE-20240103-4755615-1

PATIENT
  Age: 14 Year
  Sex: Female

DRUGS (6)
  1. DAUNORUBICIN HYDROCHLORIDE [Suspect]
     Active Substance: DAUNORUBICIN HYDROCHLORIDE
     Indication: Hepatosplenic T-cell lymphoma
     Dosage: GMALL INDUCTION
  2. METHOTREXATE SODIUM [Suspect]
     Active Substance: METHOTREXATE SODIUM
     Indication: Prophylaxis
     Dosage: GMALL INDUCTION
     Route: 037
  3. METHOTREXATE SODIUM [Suspect]
     Active Substance: METHOTREXATE SODIUM
     Indication: Hepatosplenic T-cell lymphoma
  4. DEXAMETHASONE [Concomitant]
     Active Substance: DEXAMETHASONE
     Indication: Hepatosplenic T-cell lymphoma
     Dosage: GMALL INDUCTION
  5. ASPARAGINASE [Concomitant]
     Active Substance: ASPARAGINASE
     Indication: Hepatosplenic T-cell lymphoma
     Dosage: GMALL INDUCTION
  6. VINCRISTINE SULFATE [Concomitant]
     Active Substance: VINCRISTINE SULFATE
     Indication: Hepatosplenic T-cell lymphoma
     Dosage: GMALL INDUCTION

REACTIONS (1)
  - Off label use [Unknown]
